FAERS Safety Report 5820386-0 (Version None)
Quarter: 2008Q3

REPORT INFORMATION
  Report Type: 
  Country: None (occurrence: None)
  Receive Date: 20080724
  Receipt Date: 20070627
  Transmission Date: 20090109
  Serious: No
  Sender: FDA-Public Use
  Company Number: A0659243A

PATIENT
  Age: 41 Year
  Sex: Male

DRUGS (2)
  1. AVANDIA [Suspect]
     Dosage: 2MG PER DAY
     Route: 048
     Dates: start: 20070201
  2. LIPITOR [Concomitant]

REACTIONS (8)
  - ABNORMAL SENSATION IN EYE [None]
  - BURNING SENSATION [None]
  - CHEST DISCOMFORT [None]
  - CHEST PAIN [None]
  - EYE INFLAMMATION [None]
  - EYE IRRITATION [None]
  - PAIN IN EXTREMITY [None]
  - PARAESTHESIA [None]
